FAERS Safety Report 15693271 (Version 1)
Quarter: 2018Q4

REPORT INFORMATION
  Report Type: Spontaneous
  Country: US (occurrence: US)
  Receive Date: 20181206
  Receipt Date: 20181206
  Transmission Date: 20190205
  Serious: No
  Sender: FDA-Public Use
  Company Number: US-BIOGEN-2018BI00665145

PATIENT
  Sex: Female

DRUGS (1)
  1. TYSABRI [Suspect]
     Active Substance: NATALIZUMAB
     Indication: MULTIPLE SCLEROSIS
     Route: 042
     Dates: start: 20140128

REACTIONS (8)
  - Irritability [Unknown]
  - Feeling cold [Unknown]
  - Viral upper respiratory tract infection [Unknown]
  - Decreased immune responsiveness [Unknown]
  - Peripheral swelling [Unknown]
  - Mental impairment [Unknown]
  - Hypoaesthesia [Unknown]
  - Pain [Unknown]
